FAERS Safety Report 5076766-7 (Version None)
Quarter: 2006Q3

REPORT INFORMATION
  Report Type: 
  Country: None (occurrence: None)
  Receive Date: 20060725
  Receipt Date: 20060419
  Transmission Date: 20061208
  Serious: Yes (Disabling)
  Sender: FDA-Public Use
  Company Number: 200610826BWH

PATIENT
  Age: 56 Year
  Sex: Male
  Weight: 122.4712 kg

DRUGS (17)
  1. NEXAVAR [Suspect]
     Indication: NEUROENDOCRINE TUMOUR
     Dosage: 400 MG, BID, ORAL
     Route: 048
     Dates: start: 20060209, end: 20060215
  2. LISINOPRIL [Concomitant]
  3. VANCOMYCIN [Concomitant]
  4. CIPROFLOXACIN [Concomitant]
  5. OXYCONTIN [Concomitant]
  6. FLOMAX [Concomitant]
  7. PRILOSEC [Concomitant]
  8. DAYPRO [Concomitant]
  9. PANCREATIC ENZYMES [Concomitant]
  10. METFORMIN HCL [Concomitant]
  11. SANDOSTATIN [Concomitant]
  12. ULTRAM [Concomitant]
  13. LOPERAMIDE [Concomitant]
  14. PERCOCET [Concomitant]
  15. MUCINEX [Concomitant]
  16. SKELAXIN [Concomitant]
  17. DOXYCYCLINE [Concomitant]

REACTIONS (7)
  - ARTHRALGIA [None]
  - BLOOD PRESSURE INCREASED [None]
  - DIARRHOEA [None]
  - DRY SKIN [None]
  - DYSPHONIA [None]
  - MYALGIA [None]
  - NEUROPATHY PERIPHERAL [None]
